FAERS Safety Report 6691576-2 (Version None)
Quarter: 2010Q2

REPORT INFORMATION
  Report Type: 
  Country: None (occurrence: None)
  Receive Date: 20100422
  Receipt Date: 20100413
  Transmission Date: 20101027
  Serious: Yes (Hospitalization)
  Sender: FDA-Public Use
  Company Number: IT-ABBOTT-10P-083-0638234-00

PATIENT
  Sex: Female

DRUGS (2)
  1. VECLAM [Suspect]
     Indication: PYREXIA
     Route: 048
     Dates: start: 20100114, end: 20100119
  2. COUMADIN [Suspect]
     Indication: ATRIAL FLUTTER
     Route: 048
     Dates: start: 20050214, end: 20100119

REACTIONS (1)
  - INTERNATIONAL NORMALISED RATIO INCREASED [None]
